FAERS Safety Report 5072225-6 (Version None)
Quarter: 2006Q3

REPORT INFORMATION
  Report Type: 
  Country: None (occurrence: None)
  Receive Date: 20060807
  Receipt Date: 20060704
  Transmission Date: 20061208
  Serious: Yes (Hospitalization)
  Sender: FDA-Public Use
  Company Number: FR-AVENTIS-200612388FR

PATIENT
  Age: 46 Year
  Sex: Female

DRUGS (13)
  1. ARAVA [Suspect]
     Indication: RHEUMATOID ARTHRITIS
     Route: 048
     Dates: start: 20000101, end: 20060529
  2. PENTASA [Concomitant]
     Route: 048
  3. VOLTAREN [Concomitant]
     Route: 003
  4. EUPHYTOSE [Concomitant]
     Route: 048
  5. DIDRONEL [Concomitant]
     Route: 048
  6. FIXICAL [Concomitant]
     Route: 048
  7. CORTANCYL [Concomitant]
     Route: 048
  8. BREXIN [Concomitant]
     Route: 048
  9. NEXIUM [Concomitant]
     Route: 048
  10. MOTILYO [Concomitant]
     Route: 048
  11. SMECTA [Concomitant]
     Route: 048
  12. IMODIUM [Concomitant]
     Route: 048
  13. FLAGYL [Concomitant]
     Route: 048

REACTIONS (6)
  - COLITIS [None]
  - CROHN'S DISEASE [None]
  - DIARRHOEA [None]
  - DRUG INEFFECTIVE [None]
  - ILEITIS [None]
  - MELANOSIS [None]
